FAERS Safety Report 9639756 (Version 1)
Quarter: 2013Q4

REPORT INFORMATION
  Report Type: Spontaneous
  Country: US (occurrence: None)
  Receive Date: 20131021
  Receipt Date: 20131021
  Transmission Date: 20140711
  Serious: Yes (Disabling)
  Sender: FDA-Public Use
  Company Number: None

PATIENT
  Age: 83 Year
  Sex: Male
  Weight: 72.58 kg

DRUGS (1)
  1. REGLAN [Suspect]
     Indication: NAUSEA
     Route: 048

REACTIONS (2)
  - Diarrhoea [None]
  - Suicidal ideation [None]
